FAERS Safety Report 25254723 (Version 1)
Quarter: 2025Q2

REPORT INFORMATION
  Report Type: Spontaneous
  Country: US (occurrence: US)
  Receive Date: 20250430
  Receipt Date: 20250430
  Transmission Date: 20250717
  Serious: No
  Sender: CSL Plasma
  Company Number: US-CSLP-26302191080-V12899854-8

PATIENT
  Age: 22 Year
  Sex: Female

DRUGS (3)
  1. ANTICOAGULANT SODIUM CITRATE [Suspect]
     Active Substance: SODIUM CITRATE
     Indication: Anticoagulant therapy
     Route: 050
     Dates: start: 20250408, end: 20250408
  2. LEXAPRO [Concomitant]
     Active Substance: ESCITALOPRAM OXALATE
     Indication: Anxiety
  3. WELLBUTRIN [Concomitant]
     Active Substance: BUPROPION HYDROCHLORIDE
     Indication: Depression

REACTIONS (12)
  - Dizziness [Recovered/Resolved]
  - Hypoaesthesia oral [Recovered/Resolved]
  - Paraesthesia [Recovered/Resolved]
  - Hypoaesthesia [Recovered/Resolved]
  - Chest discomfort [Recovered/Resolved]
  - Dysgeusia [Recovered/Resolved]
  - Paraesthesia oral [Recovered/Resolved]
  - Hyperhidrosis [Recovered/Resolved]
  - Nausea [Recovered/Resolved]
  - Chest pain [Recovered/Resolved]
  - Anxiety [Recovered/Resolved]
  - Pallor [Recovered/Resolved]

NARRATIVE: CASE EVENT DATE: 20250408
